FAERS Safety Report 16043545 (Version 1)
Quarter: 2019Q1

REPORT INFORMATION
  Report Type: Spontaneous
  Country: DE (occurrence: DE)
  Receive Date: 20190306
  Receipt Date: 20190306
  Transmission Date: 20190418
  Serious: Yes (Other)
  Sender: FDA-Public Use
  Company Number: DE-JNJFOC-20190236833

PATIENT
  Age: 4 Decade
  Sex: Male
  Weight: 90 kg

DRUGS (1)
  1. STELARA [Suspect]
     Active Substance: USTEKINUMAB
     Indication: PRODUCT USED FOR UNKNOWN INDICATION
     Route: 058
     Dates: start: 20181101

REACTIONS (5)
  - Neoplasm progression [Unknown]
  - Product use issue [Unknown]
  - Off label use [Unknown]
  - Stress [Unknown]
  - Cyst [Unknown]

NARRATIVE: CASE EVENT DATE: 20181101
